FAERS Safety Report 6887334-6 (Version None)
Quarter: 2010Q3

REPORT INFORMATION
  Report Type: 
  Country: None (occurrence: None)
  Receive Date: 20100730
  Receipt Date: 20090818
  Transmission Date: 20110219
  Serious: No
  Sender: FDA-Public Use
  Company Number: A0802825A

PATIENT
  Age: 48 Year
  Sex: Female

DRUGS (5)
  1. IMITREX [Suspect]
     Route: 048
  2. INTERFERON [Suspect]
     Indication: HEPATITIS C
     Route: 065
  3. LORTAB [Suspect]
     Route: 048
     Dates: start: 19990101
  4. MORPHINE [Suspect]
     Indication: PAIN
     Route: 048
     Dates: start: 19990101
  5. OXYCONTIN [Suspect]
     Route: 048
     Dates: start: 19990101

REACTIONS (1)
  - DRUG INEFFECTIVE [None]
